FAERS Safety Report 16120307 (Version 5)
Quarter: 2019Q3

REPORT INFORMATION
  Report Type: Spontaneous
  Country: US (occurrence: US)
  Receive Date: 20190326
  Receipt Date: 20190829
  Transmission Date: 20191004
  Serious: Yes (Hospitalization)
  Sender: FDA-Public Use
  Company Number: US-ACTELION-A-US2019-187246

PATIENT
  Sex: Female

DRUGS (1)
  1. OPSUMIT [Suspect]
     Active Substance: MACITENTAN
     Indication: PULMONARY ARTERIAL HYPERTENSION
     Dosage: 10 MG, QD
     Route: 048
     Dates: start: 20190121

REACTIONS (7)
  - Depression [Unknown]
  - Vomiting [Unknown]
  - Blood loss anaemia [Unknown]
  - Rheumatoid arthritis [Unknown]
  - Anxiety [Unknown]
  - Pain [Unknown]
  - Nausea [Unknown]
